FAERS Safety Report 4600461-9 (Version None)
Quarter: 2005Q1

REPORT INFORMATION
  Report Type: 
  Country: None (occurrence: None)
  Receive Date: 20050304
  Receipt Date: 20050218
  Transmission Date: 20050727
  Serious: Yes (Hospitalization, Other)
  Sender: FDA-Public Use
  Company Number: SUS1-2004-00826

PATIENT
  Age: 3 Year
  Sex: Female

DRUGS (4)
  1. PENTASA [Suspect]
     Indication: CROHN'S DISEASE
     Dosage: 375 MG, DAILY, ORAL
     Route: 048
     Dates: start: 20040909, end: 20040924
  2. METHYLPREDNISOLONE [Concomitant]
  3. SELENASE (SELENIDE SODIUM) [Concomitant]
  4. ZINKAMIN (ZINC) [Concomitant]

REACTIONS (13)
  - ALANINE AMINOTRANSFERASE INCREASED [None]
  - ASPARTATE AMINOTRANSFERASE INCREASED [None]
  - BACTERIA URINE IDENTIFIED [None]
  - CUSHINGOID [None]
  - ESCHERICHIA INFECTION [None]
  - HAEMATURIA [None]
  - HAEMOGLOBIN DECREASED [None]
  - LABORATORY TEST INTERFERENCE [None]
  - NEPHRITIS [None]
  - PANCREATITIS [None]
  - PROTEINURIA [None]
  - TRI-IODOTHYRONINE DECREASED [None]
  - VIRAL PHARYNGITIS [None]
